FAERS Safety Report 5270000-0 (Version None)
Quarter: 2007Q1

REPORT INFORMATION
  Report Type: 
  Country: None (occurrence: None)
  Receive Date: 20070320
  Receipt Date: 20070309
  Transmission Date: 20070707
  Serious: Yes (Hospitalization)
  Sender: FDA-Public Use
  Company Number: US-MERCK-0703USA01515

PATIENT
  Age: 68 Year
  Sex: Female

DRUGS (13)
  1. ZETIA [Suspect]
     Indication: HYPERCHOLESTEROLAEMIA
     Route: 048
  2. ZOCOR [Suspect]
     Indication: HYPERCHOLESTEROLAEMIA
     Route: 048
  3. VYTORIN [Concomitant]
     Route: 048
  4. AMIODARONE HYDROCHLORIDE [Concomitant]
     Route: 065
  5. ASPIRIN [Concomitant]
     Route: 065
  6. PLAVIX [Concomitant]
     Route: 065
  7. XANAX [Concomitant]
     Route: 065
  8. ALLOPURINOL [Concomitant]
     Route: 065
  9. SYNTHROID [Concomitant]
     Route: 065
  10. TOPROL-XL [Concomitant]
     Route: 065
  11. DEMADEX [Concomitant]
     Route: 065
  12. DIOVAN [Concomitant]
     Route: 065
  13. LEXAPRO [Concomitant]
     Route: 065

REACTIONS (3)
  - BLOOD CREATINE PHOSPHOKINASE INCREASED [None]
  - BLOOD CREATININE ABNORMAL [None]
  - MYALGIA [None]
